FAERS Safety Report 16353407 (Version 1)
Quarter: 2019Q2

REPORT INFORMATION
  Report Type: Spontaneous
  Country: US (occurrence: US)
  Receive Date: 20190524
  Receipt Date: 20190524
  Transmission Date: 20190711
  Serious: Yes (Hospitalization)
  Sender: FDA-Public Use
  Company Number: US-MYLANLABS-2019M1047899

PATIENT
  Age: 9 Year
  Sex: Male

DRUGS (24)
  1. VANCOMYCIN [Concomitant]
     Active Substance: VANCOMYCIN
     Indication: MENINGITIS
     Route: 065
  2. MYCOPHENOLATE MOFETIL. [Concomitant]
     Active Substance: MYCOPHENOLATE MOFETIL
     Indication: NEPHROTIC SYNDROME
  3. METHYLPREDNISOLONE. [Suspect]
     Active Substance: METHYLPREDNISOLONE
     Dosage: DOSE DECREASED TO 20MG/DAY ON HOSPITAL DAY 18
     Route: 042
  4. MYCOPHENOLATE MOFETIL. [Concomitant]
     Active Substance: MYCOPHENOLATE MOFETIL
     Indication: NEPHROTIC SYNDROME
     Dosage: ON HOSPITAL DAY 15
     Route: 048
  5. LORAZEPAM. [Suspect]
     Active Substance: LORAZEPAM
     Indication: CATATONIA
     Dosage: 3MG THREE TIMES/DAY STARTED ON HOSPITAL DAY 10; DOSE DECREASED TO 3MG FROM 3.75MG DUE TO CONCERN ...
     Route: 048
  6. LORAZEPAM. [Suspect]
     Active Substance: LORAZEPAM
     Dosage: STARTED ON HOSPITAL DAY 18
     Route: 048
  7. METHYLPREDNISOLONE. [Suspect]
     Active Substance: METHYLPREDNISOLONE
     Indication: NEPHROTIC SYNDROME
     Dosage: DOSE DECREASED TO 30MG/DAY ON HOSPITAL DAY 14
     Route: 042
  8. ACYCLOVIR                          /00587301/ [Concomitant]
     Active Substance: ACYCLOVIR
     Indication: MENINGITIS
     Route: 065
  9. CEFTRIAXONE. [Concomitant]
     Active Substance: CEFTRIAXONE
     Indication: EVIDENCE BASED TREATMENT
  10. PREDNISOLONE. [Suspect]
     Active Substance: PREDNISOLONE
     Indication: FLUID OVERLOAD
     Dosage: 60 MILLIGRAM, QD
     Route: 048
  11. AMLODIPINE [Concomitant]
     Active Substance: AMLODIPINE BESYLATE
     Indication: NEPHROTIC SYNDROME
  12. LISINOPRIL. [Concomitant]
     Active Substance: LISINOPRIL
     Indication: NEPHROTIC SYNDROME
  13. PREDNISOLONE. [Suspect]
     Active Substance: PREDNISOLONE
     Indication: NEPHROTIC SYNDROME
     Dosage: STARTED ON HOSPITAL DAY 20
     Route: 048
  14. LISINOPRIL. [Concomitant]
     Active Substance: LISINOPRIL
     Indication: FLUID OVERLOAD
     Route: 065
  15. VANCOMYCIN [Concomitant]
     Active Substance: VANCOMYCIN
     Indication: EVIDENCE BASED TREATMENT
  16. CEFTRIAXONE. [Concomitant]
     Active Substance: CEFTRIAXONE
     Indication: MENINGITIS
     Route: 065
  17. CICLOSPORIN [Suspect]
     Active Substance: CYCLOSPORINE
     Indication: FLUID OVERLOAD
     Dosage: 125 MG QAM
     Route: 065
  18. CICLOSPORIN [Suspect]
     Active Substance: CYCLOSPORINE
     Indication: NEPHROTIC SYNDROME
     Dosage: 100MG QHS
     Route: 065
  19. METHYLPREDNISOLONE. [Suspect]
     Active Substance: METHYLPREDNISOLONE
     Indication: FLUID OVERLOAD
     Dosage: 48 MILLIGRAM, QD
     Route: 042
  20. PROPOFOL. [Concomitant]
     Active Substance: PROPOFOL
     Indication: INDUCTION OF ANAESTHESIA
     Dosage: RECEIVED ON HOSPITAL DAY 3 IN PREPARATION FOR A LUMBAR PUNCTURE FOR FURTHER WORK-UP
     Route: 041
  21. AMLODIPINE [Concomitant]
     Active Substance: AMLODIPINE BESYLATE
     Indication: FLUID OVERLOAD
     Route: 065
  22. ACYCLOVIR                          /00587301/ [Concomitant]
     Active Substance: ACYCLOVIR
     Indication: EVIDENCE BASED TREATMENT
  23. MYCOPHENOLATE MOFETIL. [Concomitant]
     Active Substance: MYCOPHENOLATE MOFETIL
     Indication: FLUID OVERLOAD
     Dosage: STARTED ON HOSPITAL DAY 5
     Route: 042
  24. MYCOPHENOLATE MOFETIL. [Concomitant]
     Active Substance: MYCOPHENOLATE MOFETIL
     Indication: FLUID OVERLOAD
     Dosage: STARTED ON DAY 12
     Route: 048

REACTIONS (4)
  - Catatonia [Recovered/Resolved]
  - Psychomotor retardation [Recovered/Resolved]
  - Sedation [Recovered/Resolved]
  - Treatment noncompliance [Unknown]
